FAERS Safety Report 14309155 (Version 1)
Quarter: 2017Q4

REPORT INFORMATION
  Report Type: Spontaneous
  Country: US (occurrence: US)
  Receive Date: 20171220
  Receipt Date: 20171220
  Transmission Date: 20180321
  Serious: No
  Sender: FDA-Public Use
  Company Number: None

PATIENT
  Sex: Female

DRUGS (1)
  1. IBRANCE [Suspect]
     Active Substance: PALBOCICLIB
     Indication: PRODUCT USED FOR UNKNOWN INDICATION
     Dosage: 100 MG DAILY X 21 DAYS THEN 7 DAYS OFF ORALLY
     Route: 048
     Dates: start: 201705

REACTIONS (4)
  - Muscle spasms [None]
  - Pain in extremity [None]
  - Alopecia [None]
  - Procedural pain [None]
